FAERS Safety Report 6224104-6 (Version None)
Quarter: 2009Q2

REPORT INFORMATION
  Report Type: 
  Country: None (occurrence: None)
  Receive Date: 20090612
  Receipt Date: 20090310
  Transmission Date: 20091009
  Serious: No
  Sender: FDA-Public Use
  Company Number: US-ABBOTT-09P-163-0561567-00

PATIENT
  Sex: Male

DRUGS (3)
  1. HUMIRA [Suspect]
     Indication: PSORIASIS
  2. HUMIRA [Suspect]
  3. HUMIRA [Suspect]
     Dates: start: 20090102, end: 20090102

REACTIONS (2)
  - NODULE ON EXTREMITY [None]
  - UPPER RESPIRATORY TRACT INFECTION [None]
